FAERS Safety Report 16600379 (Version 1)
Quarter: 2019Q3

REPORT INFORMATION
  Report Type: Spontaneous
  Country: US (occurrence: US)
  Receive Date: 20190720
  Receipt Date: 20190720
  Transmission Date: 20191004
  Serious: Yes (Other)
  Sender: FDA-Public Use
  Company Number: US-EMCURE PHARMACEUTICALS LTD-2019-EPL-0351

PATIENT
  Age: 38 Year
  Sex: Female

DRUGS (3)
  1. ACETAMINOPHEN. [Suspect]
     Active Substance: ACETAMINOPHEN
     Indication: FACIAL PAIN
     Dosage: FREQUENT INTRANASAL USE OF CRUSHED TABLETS
     Route: 045
  2. ACETAMINOPHEN. [Suspect]
     Active Substance: ACETAMINOPHEN
     Indication: NASAL CONGESTION
  3. ACETAMINOPHEN. [Suspect]
     Active Substance: ACETAMINOPHEN
     Indication: OROPHARYNGEAL PAIN

REACTIONS (3)
  - Sinusitis fungal [Recovered/Resolved]
  - Incorrect route of product administration [Unknown]
  - Nasal necrosis [Recovered/Resolved]
